FAERS Safety Report 10213586 (Version 1)
Quarter: 2014Q2

REPORT INFORMATION
  Report Type: Spontaneous
  Country: US (occurrence: None)
  Receive Date: 20140602
  Receipt Date: 20140602
  Transmission Date: 20141212
  Serious: Yes (Life-Threatening)
  Sender: FDA-Public Use
  Company Number: None

PATIENT
  Age: 65 Year
  Sex: Male
  Weight: 104.33 kg

DRUGS (2)
  1. CARTIA XT [Suspect]
     Indication: NO REACTION ON PREVIOUS EXPOSURE TO DRUG
     Dosage: 1 PER DAY ONCE DAILY TAKEN BY MOUTH
     Route: 048
     Dates: start: 20140530, end: 20140530
  2. CARTIA XT [Suspect]
     Indication: BLOOD PRESSURE DECREASED
     Dosage: 1 PER DAY ONCE DAILY TAKEN BY MOUTH
     Route: 048
     Dates: start: 20140530, end: 20140530

REACTIONS (4)
  - Dizziness [None]
  - Blood pressure decreased [None]
  - Drug interaction [None]
  - Product quality issue [None]
